FAERS Safety Report 19991074 (Version 1)
Quarter: 2021Q4

REPORT INFORMATION
  Report Type: Spontaneous
  Country: US (occurrence: US)
  Receive Date: 20211025
  Receipt Date: 20211025
  Transmission Date: 20220304
  Serious: No
  Sender: FDA-Public Use
  Company Number: US-GLAXOSMITHKLINE-USCH2021073732

PATIENT
  Age: 56 Year
  Sex: Female

DRUGS (1)
  1. MEMBERS MARK NICOTINE [Suspect]
     Active Substance: NICOTINE
     Indication: Smoking cessation therapy
     Dosage: UNK
     Route: 062

REACTIONS (1)
  - Application site pruritus [Recovered/Resolved]
